FAERS Safety Report 7832306-8 (Version None)
Quarter: 2011Q4

REPORT INFORMATION
  Report Type: 
  Country: None (occurrence: None)
  Receive Date: 20111022
  Receipt Date: 20111007
  Transmission Date: 20120403
  Serious: Yes (Hospitalization, Other)
  Sender: FDA-Public Use
  Company Number: US-BAYER-2011-081828

PATIENT
  Age: 19 Year
  Sex: Female
  Weight: 86.984 kg

DRUGS (12)
  1. EPOETIN NOS [Concomitant]
  2. FLUOXETINE HYDROCHLORIDE [Concomitant]
     Dosage: 20 MG, UNK
  3. YASMIN [Suspect]
     Indication: PREMENSTRUAL SYNDROME
  4. CLONAZEPAM [Concomitant]
     Dosage: 1 MG, UNK
  5. CARVEDILOL [Concomitant]
     Dosage: 25 MG, BID
     Route: 048
  6. YAZ [Suspect]
     Indication: ACNE
     Dosage: UNK
     Dates: start: 20070101, end: 20081221
  7. MIRENA [Concomitant]
     Dosage: UNK
     Dates: start: 20090101
  8. YAZ [Suspect]
     Indication: PREMENSTRUAL SYNDROME
  9. ENALAPRIL MALEATE [Concomitant]
     Dosage: 20 MG, BID
     Route: 048
  10. YASMIN [Suspect]
     Indication: ACNE
     Dosage: UNK
     Dates: start: 20070101, end: 20081221
  11. FUROSEMIDE [Concomitant]
     Dosage: 20 MG, QD
     Route: 048
  12. MAGNESIUM OXIDE [Concomitant]
     Dosage: 400 MG, BID
     Route: 048

REACTIONS (13)
  - STRESS [None]
  - BACK PAIN [None]
  - PAIN [None]
  - RENAL FAILURE [None]
  - THROMBOTIC THROMBOCYTOPENIC PURPURA [None]
  - DISSEMINATED INTRAVASCULAR COAGULATION [None]
  - CARDIOMYOPATHY [None]
  - GALLBLADDER DISORDER [None]
  - DEPRESSION [None]
  - HEPATIC FAILURE [None]
  - INFERTILITY [None]
  - INJURY [None]
  - CARDIAC FAILURE [None]
